FAERS Safety Report 21586865 (Version 1)
Quarter: 2022Q4

REPORT INFORMATION
  Report Type: Spontaneous
  Country: US (occurrence: None)
  Receive Date: 20221110
  Receipt Date: 20221110
  Transmission Date: 20230113
  Serious: Yes (Hospitalization)
  Sender: FDA-Public Use
  Company Number: None

PATIENT
  Sex: Male

DRUGS (14)
  1. HUMIRA [Suspect]
     Active Substance: ADALIMUMAB
     Indication: Psoriasis
     Dosage: 40MG/0.8ML? ?INJECT 0.8 ML (40 MG TOTAL) UNDER THE SKIN EVERY 14 (FOURTEEN) DAYS.
     Route: 058
     Dates: start: 20180629
  2. CRANBERRY TAB [Concomitant]
  3. FOLIC ACID TAB [Concomitant]
  4. HALOBETASOL OIN [Concomitant]
  5. HYDROCHLOROT TAB [Concomitant]
  6. IBUPROFEN TAB [Concomitant]
  7. M-M-R II INJ [Concomitant]
  8. METHOTREXATE [Concomitant]
     Active Substance: METHOTREXATE
  9. MULTIVITAMIN TAB MEN 50+ [Concomitant]
  10. PREDNISONE [Concomitant]
     Active Substance: PREDNISONE
  11. TAMSULOSIN [Concomitant]
     Active Substance: TAMSULOSIN
  12. TURMERIC CAP [Concomitant]
  13. TWINRIX INJ [Concomitant]
  14. VERAPAMIL TAB ER [Concomitant]

REACTIONS (2)
  - Surgery [None]
  - Therapy interrupted [None]
